FAERS Safety Report 7394753-0 (Version None)
Quarter: 2011Q2

REPORT INFORMATION
  Report Type: 
  Country: None (occurrence: None)
  Receive Date: 20110405
  Receipt Date: 20110321
  Transmission Date: 20111010
  Serious: Yes (Hospitalization)
  Sender: FDA-Public Use
  Company Number: FR-GENENTECH-315971

PATIENT
  Sex: Male

DRUGS (4)
  1. FLUTICASONE PROPIONATE [Suspect]
     Indication: PRODUCT USED FOR UNKNOWN INDICATION
     Dosage: 55 A?G, QD
  2. SERETIDE [Suspect]
     Indication: PRODUCT USED FOR UNKNOWN INDICATION
  3. MIZOLLEN [Suspect]
     Indication: PRODUCT USED FOR UNKNOWN INDICATION
     Dosage: 10 MG, QD
  4. XOLAIR [Suspect]
     Indication: ASTHMA
     Dosage: 3 DF, Q2W
     Route: 058
     Dates: start: 20100101, end: 20100911

REACTIONS (11)
  - BALANCE DISORDER [None]
  - MALAISE [None]
  - MUSCULAR WEAKNESS [None]
  - MYOSITIS [None]
  - POLYNEUROPATHY [None]
  - DYSPHONIA [None]
  - AUTONOMIC NERVOUS SYSTEM IMBALANCE [None]
  - NERVOUS SYSTEM DISORDER [None]
  - GENERAL PHYSICAL HEALTH DETERIORATION [None]
  - PAIN [None]
  - ATAXIA [None]
